FAERS Safety Report 23130882 (Version 1)
Quarter: 2023Q4

REPORT INFORMATION
  Report Type: Spontaneous
  Country: CN (occurrence: CN)
  Receive Date: 20231031
  Receipt Date: 20231031
  Transmission Date: 20240109
  Serious: Yes (Hospitalization)
  Sender: FDA-Public Use
  Company Number: CN-NAPPMUNDI-GBR-2023-0111800

PATIENT
  Age: 58 Year
  Sex: Female
  Weight: 60 kg

DRUGS (1)
  1. OXYCODONE HYDROCHLORIDE [Suspect]
     Active Substance: OXYCODONE HYDROCHLORIDE
     Indication: Analgesic therapy
     Dosage: 120 MILLIGRAM, Q12H (EVERY 12 HOURS)
     Route: 048
     Dates: start: 20231014, end: 20231023

REACTIONS (3)
  - Intestinal obstruction [Recovering/Resolving]
  - Mental status changes [Recovering/Resolving]
  - Inadequate diet [Recovering/Resolving]

NARRATIVE: CASE EVENT DATE: 20231023
